FAERS Safety Report 8053991-4 (Version None)
Quarter: 2012Q1

REPORT INFORMATION
  Report Type: 
  Country: None (occurrence: None)
  Receive Date: 20120118
  Receipt Date: 20120113
  Transmission Date: 20120608
  Serious: Yes (Other)
  Sender: FDA-Public Use
  Company Number: CA-PURDUE-CAN-2012-0002518

PATIENT
  Age: 74 Year
  Sex: Male

DRUGS (2)
  1. TYLENOL (CAPLET) [Suspect]
     Indication: PAIN
     Dosage: UNK
     Route: 065
  2. MORPHINE SULFATE [Suspect]
     Indication: PAIN
     Dosage: UNK
     Route: 065

REACTIONS (4)
  - DRUG INEFFECTIVE [None]
  - PAIN [None]
  - WEIGHT DECREASED [None]
  - BACTERIAL INFECTION [None]
